FAERS Safety Report 6215950-3 (Version None)
Quarter: 2009Q2

REPORT INFORMATION
  Report Type: 
  Country: None (occurrence: None)
  Receive Date: 20090603
  Receipt Date: 20090525
  Transmission Date: 20091009
  Serious: Yes (Life-Threatening)
  Sender: FDA-Public Use
  Company Number: LTI2009A00102

PATIENT
  Age: 52 Year
  Sex: Female

DRUGS (9)
  1. ACTOPLUS MET [Suspect]
     Indication: TYPE 2 DIABETES MELLITUS
     Dosage: 2 TAB (1 TAB, 2 IN 1D) ORAL
     Route: 048
     Dates: start: 20080114, end: 20081017
  2. AMARYL [Suspect]
  3. KARDEGIC (ACTEYLSALICYLATE LYSINE) [Concomitant]
  4. ISOPTIN [Concomitant]
  5. LISINOPRIL [Concomitant]
  6. MEPRONIZINE (MEPROBAMATE, ACEPROMETAZINE) [Concomitant]
  7. XANAX [Concomitant]
  8. ESCITALOPRAM [Concomitant]
  9. ATHYMIL (MIANSERIN HYDROCHLORIDE) [Suspect]

REACTIONS (1)
  - TRANSITIONAL CELL CARCINOMA [None]
